FAERS Safety Report 7541320-1 (Version None)
Quarter: 2011Q2

REPORT INFORMATION
  Report Type: 
  Country: None (occurrence: None)
  Receive Date: 20110612
  Receipt Date: 20110526
  Transmission Date: 20111010
  Serious: No
  Sender: FDA-Public Use
  Company Number: US-ROXANE LABORATORIES, INC.-2011-RO-00561RO

PATIENT
  Sex: Male
  Weight: 109 kg

DRUGS (3)
  1. WARFARIN SODIUM [Concomitant]
  2. AZATHIOPRINE [Suspect]
     Indication: PEMPHIGOID
     Dosage: 200 MG
     Route: 048
  3. METFORMIN HCL [Concomitant]
     Indication: DIABETES MELLITUS

REACTIONS (1)
  - DRUG INEFFECTIVE [None]
